FAERS Safety Report 8565534-7 (Version None)
Quarter: 2012Q3

REPORT INFORMATION
  Report Type: 
  Country: None (occurrence: None)
  Receive Date: 20120803
  Receipt Date: 20120725
  Transmission Date: 20120928
  Serious: Yes (Hospitalization, Other)
  Sender: FDA-Public Use
  Company Number: US-JNJFOC-20120713216

PATIENT
  Age: 50 Year
  Sex: Male
  Weight: 77.11 kg

DRUGS (4)
  1. INVEGA SUSTENNA [Suspect]
     Route: 042
     Dates: start: 20111201, end: 20120601
  2. LITHIUM CARBONATE [Concomitant]
     Indication: BIPOLAR DISORDER
     Dosage: ONCE IN THE MORNING
     Route: 048
  3. CELEXA [Concomitant]
     Indication: BIPOLAR DISORDER
     Route: 048
  4. INVEGA SUSTENNA [Suspect]
     Indication: BIPOLAR DISORDER
     Route: 042
     Dates: start: 20120701, end: 20120701

REACTIONS (7)
  - PALPITATIONS [None]
  - PRODUCT QUALITY ISSUE [None]
  - INCORRECT ROUTE OF DRUG ADMINISTRATION [None]
  - FATIGUE [None]
  - CATATONIA [None]
  - WEIGHT INCREASED [None]
  - SENSORY DISTURBANCE [None]
